FAERS Safety Report 4586322-2 (Version None)
Quarter: 2005Q1

REPORT INFORMATION
  Report Type: 
  Country: None (occurrence: None)
  Receive Date: 20050217
  Receipt Date: 20050104
  Transmission Date: 20050727
  Serious: Yes (Life-Threatening, Disabling)
  Sender: FDA-Public Use
  Company Number: US-MERCK-0501USA00261

PATIENT
  Age: 57 Year
  Sex: Female

DRUGS (4)
  1. VIOXX [Suspect]
     Indication: RHEUMATOID ARTHRITIS
     Route: 048
     Dates: start: 20031001, end: 20041001
  2. METHOTREXATE [Concomitant]
     Route: 065
  3. NEXIUM [Concomitant]
     Route: 065
  4. SALAGEN [Concomitant]
     Route: 065

REACTIONS (5)
  - CHEST WALL PAIN [None]
  - DIZZINESS [None]
  - HOT FLUSH [None]
  - PALPITATIONS [None]
  - POLLAKIURIA [None]
